FAERS Safety Report 21318889 (Version 1)
Quarter: 2022Q3

REPORT INFORMATION
  Report Type: Spontaneous
  Country: US (occurrence: US)
  Receive Date: 20220911
  Receipt Date: 20220911
  Transmission Date: 20221027
  Serious: No
  Sender: FDA-Public Use
  Company Number: US-SA-SAC20220830000847

PATIENT
  Age: 58 Year
  Sex: Female

DRUGS (1)
  1. DUPIXENT [Suspect]
     Active Substance: DUPILUMAB
     Indication: Dermatitis atopic
     Dosage: 300 MG, QOW
     Route: 058

REACTIONS (12)
  - Migraine [Unknown]
  - Headache [Unknown]
  - Pain [Unknown]
  - Somnolence [Unknown]
  - Rhinorrhoea [Unknown]
  - Nasal congestion [Unknown]
  - Bone pain [Unknown]
  - Fatigue [Unknown]
  - Sensitivity to weather change [Unknown]
  - Dry eye [Unknown]
  - Arthralgia [Unknown]
  - Hypersensitivity [Unknown]
